FAERS Safety Report 8267094-7 (Version None)
Quarter: 2012Q2

REPORT INFORMATION
  Report Type: 
  Country: None (occurrence: None)
  Receive Date: 20120409
  Receipt Date: 20120327
  Transmission Date: 20120825
  Serious: Yes (Hospitalization)
  Sender: FDA-Public Use
  Company Number: JP-CELGENEUS-087-21880-12022620

PATIENT
  Age: 81 Year
  Sex: Male

DRUGS (5)
  1. ASPIRIN [Concomitant]
     Indication: PROPHYLAXIS
     Dosage: 100 MILLIGRAM
     Route: 048
     Dates: start: 20120125, end: 20120214
  2. DEXAMETHASONE ACETATE [Suspect]
     Indication: MULTIPLE MYELOMA
     Dosage: 12 MILLIGRAM
     Route: 048
     Dates: start: 20120125, end: 20120128
  3. REVLIMID [Suspect]
     Indication: MULTIPLE MYELOMA
     Dosage: 15 MILLIGRAM
     Route: 048
     Dates: start: 20120125, end: 20120214
  4. FAMOTIDINE [Concomitant]
     Indication: PROPHYLAXIS
     Dosage: 10 MILLIGRAM
     Route: 048
     Dates: start: 20120125, end: 20120214
  5. ENBREL [Concomitant]
     Indication: RHEUMATOID ARTHRITIS
     Dosage: 25 MILLIGRAM
     Route: 058
     Dates: start: 20090101

REACTIONS (1)
  - INTERSTITIAL LUNG DISEASE [None]
